FAERS Safety Report 7440121-2 (Version None)
Quarter: 2011Q2

REPORT INFORMATION
  Report Type: 
  Country: None (occurrence: None)
  Receive Date: 20110427
  Receipt Date: 20110318
  Transmission Date: 20111010
  Serious: Yes (Hospitalization, Other)
  Sender: FDA-Public Use
  Company Number: US-BAYER-201031826NA

PATIENT
  Age: 18 Year
  Sex: Female
  Weight: 68 kg

DRUGS (3)
  1. ACETAMINOPHEN [Concomitant]
  2. YASMIN [Suspect]
     Indication: ACNE
     Dosage: UNK
     Route: 048
  3. VICODIN [Concomitant]

REACTIONS (7)
  - FLATULENCE [None]
  - ABDOMINAL DISTENSION [None]
  - CONSTIPATION [None]
  - CHOLECYSTECTOMY [None]
  - CHOLECYSTITIS [None]
  - DYSPEPSIA [None]
  - DIARRHOEA [None]
